FAERS Safety Report 5028124-9 (Version None)
Quarter: 2006Q2

REPORT INFORMATION
  Report Type: 
  Country: None (occurrence: None)
  Receive Date: 20060613
  Receipt Date: 20060603
  Transmission Date: 20061013
  Serious: Yes (Other)
  Sender: FDA-Public Use
  Company Number: 2006-06-0222

PATIENT
  Age: 15 Year
  Sex: Female

DRUGS (6)
  1. PEG-INTERFERON [Suspect]
     Indication: HEPATITIS C
  2. RIBAVIRIN [Suspect]
     Indication: HEPATITIS C
  3. CYCLOSPORINE [Concomitant]
  4. PREDNISONE TAB [Concomitant]
  5. AZATHIOPRINE [Concomitant]
  6. RIBAVIRIN [Concomitant]

REACTIONS (4)
  - ANAEMIA [None]
  - CHRONIC HEPATITIS [None]
  - HEPATITIS VIRAL [None]
  - LIVER TRANSPLANT REJECTION [None]
